FAERS Safety Report 22123343 (Version 2)
Quarter: 2023Q1

REPORT INFORMATION
  Report Type: Report from Study
  Country: US (occurrence: US)
  Receive Date: 20230322
  Receipt Date: 20230323
  Transmission Date: 20230418
  Serious: Yes (Hospitalization)
  Sender: FDA-Public Use
  Company Number: US-ARGENX-2023-ARGX-US000328

PATIENT

DRUGS (2)
  1. VYVGART [Suspect]
     Active Substance: EFGARTIGIMOD ALFA-FCAB
     Indication: Myasthenia gravis
     Dosage: UNK
     Route: 065
  2. PREDNISONE [Concomitant]
     Active Substance: PREDNISONE
     Indication: Myasthenia gravis
     Dosage: UNK

REACTIONS (11)
  - Chest pain [Unknown]
  - Dyspnoea [Unknown]
  - Urinary tract infection [Unknown]
  - Bronchitis [Recovered/Resolved]
  - Symptom recurrence [Unknown]
  - Myasthenia gravis [Unknown]
  - Asthenia [Unknown]
  - Product administration interrupted [Unknown]
  - Nausea [Unknown]
  - Vomiting [Unknown]
  - Herpes zoster [Unknown]

NARRATIVE: CASE EVENT DATE: 20221001
